FAERS Safety Report 15307804 (Version 1)
Quarter: 2018Q3

REPORT INFORMATION
  Report Type: Report from Study
  Country: BD (occurrence: BD)
  Receive Date: 20180822
  Receipt Date: 20180822
  Transmission Date: 20181010
  Serious: Yes (Hospitalization, Other)
  Sender: FDA-Public Use
  Company Number: BD-SA-2018SA226528

PATIENT
  Age: 62 Year
  Sex: Male

DRUGS (2)
  1. INSULIN GLARGINE [Suspect]
     Active Substance: INSULIN GLARGINE
     Dosage: 12 U, QD
     Dates: start: 20151205
  2. INSULIN GLARGINE [Suspect]
     Active Substance: INSULIN GLARGINE
     Dosage: UNK
     Dates: end: 201712

REACTIONS (2)
  - Blood glucose increased [Unknown]
  - Stent placement [Unknown]

NARRATIVE: CASE EVENT DATE: 20151228
